FAERS Safety Report 9610943 (Version 3)
Quarter: 2017Q3

REPORT INFORMATION
  Report Type: Report from Study
  Country: US (occurrence: US)
  Receive Date: 20131009
  Receipt Date: 20170918
  Transmission Date: 20171128
  Serious: Yes (Death, Life-Threatening, Hospitalization, Other)
  Sender: FDA-Public Use
  Company Number: US-TAKEDA-2013TUS000704

PATIENT
  Age: 66 Year
  Sex: Male
  Weight: 80 kg

DRUGS (31)
  1. ZETIA [Concomitant]
     Active Substance: EZETIMIBE
     Indication: HYPERLIPIDAEMIA
     Dosage: 10 MG, QD
     Route: 048
     Dates: start: 20121013
  2. LIPITOR [Concomitant]
     Active Substance: ATORVASTATIN CALCIUM
     Indication: HYPERLIPIDAEMIA
     Dosage: 20 MG, QD
     Route: 048
     Dates: start: 20130516
  3. COUMADIN [Concomitant]
     Active Substance: WARFARIN SODIUM
     Indication: LEFT VENTRICULAR DYSFUNCTION
     Dosage: 5 MG, QD
     Route: 048
     Dates: start: 20130819, end: 20130820
  4. FEBUXOSTAT. [Suspect]
     Active Substance: FEBUXOSTAT
     Indication: HYPERURICAEMIA
     Dosage: UNK, QD
     Route: 048
     Dates: start: 20120816, end: 20130514
  5. FUROSEMIDE. [Concomitant]
     Active Substance: FUROSEMIDE
     Indication: CARDIAC FAILURE CONGESTIVE
     Dosage: 40 MG, BID
     Route: 048
     Dates: start: 20121109
  6. MIDODRINE [Concomitant]
     Active Substance: MIDODRINE
     Dosage: 5 MG, QAM
     Route: 048
     Dates: start: 201305
  7. LEVEMIR [Concomitant]
     Active Substance: INSULIN DETEMIR
     Indication: DIABETES MELLITUS
     Dosage: 10 IU, QD
     Route: 058
     Dates: start: 20130322
  8. LACTULOSE. [Concomitant]
     Active Substance: LACTULOSE
     Indication: CONSTIPATION PROPHYLAXIS
     Dosage: 30 ML, QD
     Route: 048
     Dates: start: 201305
  9. SPIRONOLACTONE. [Concomitant]
     Active Substance: SPIRONOLACTONE
     Indication: HYPERTENSION
     Dosage: 12.5 MG, BID
     Route: 048
     Dates: start: 20030615
  10. PRADAXA [Concomitant]
     Active Substance: DABIGATRAN ETEXILATE MESYLATE
     Indication: ATRIAL FIBRILLATION
     Dosage: 150 MG, BID
     Route: 048
     Dates: start: 20130203
  11. SOTALOL. [Concomitant]
     Active Substance: SOTALOL
     Indication: VENTRICULAR TACHYCARDIA
     Dosage: 20 MG, BID
     Route: 048
     Dates: start: 201304
  12. TRAMADOL. [Concomitant]
     Active Substance: TRAMADOL
     Indication: DIABETIC NEUROPATHY
     Dosage: 50 MG, UNK
     Route: 048
     Dates: start: 201305
  13. PANTOPRAZOLE [Concomitant]
     Active Substance: PANTOPRAZOLE
     Indication: GASTROOESOPHAGEAL REFLUX PROPHYLAXIS
     Dosage: 40 MG, QD
     Route: 048
     Dates: start: 20130815, end: 20130821
  14. MULTIVITAMIN [Concomitant]
     Active Substance: VITAMINS
     Indication: NUTRITIONAL SUPPLEMENTATION
     Dosage: UNK UNK, QD
     Route: 048
     Dates: start: 20130204
  15. LYRICA [Concomitant]
     Active Substance: PREGABALIN
     Indication: DIABETIC NEUROPATHY
     Dosage: 50 MG, QD
     Route: 048
     Dates: start: 20130711
  16. SILDENAFIL. [Concomitant]
     Active Substance: SILDENAFIL
     Indication: LEFT VENTRICULAR DYSFUNCTION
     Dosage: UNK
     Route: 048
     Dates: start: 20130822
  17. ASPIREN [Concomitant]
     Indication: CORONARY ARTERY DISEASE
     Dosage: 81 MG, UNK
     Route: 048
     Dates: start: 20130525
  18. OXYCODONE [Concomitant]
     Active Substance: OXYCODONE
     Indication: LEFT VENTRICULAR DYSFUNCTION
     Dosage: 5/325 MG, UNK
     Route: 048
     Dates: start: 20130912
  19. METOLAZONE. [Concomitant]
     Active Substance: METOLAZONE
     Indication: OEDEMA PERIPHERAL
     Dosage: 2.5 MG, UNK
     Route: 048
     Dates: start: 201212
  20. ZANTAC [Concomitant]
     Active Substance: RANITIDINE HYDROCHLORIDE
     Indication: GASTROOESOPHAGEAL REFLUX DISEASE
     Dosage: 150 MG, QD
     Route: 048
     Dates: start: 201202
  21. DOBUTAMINE [Concomitant]
     Active Substance: DOBUTAMINE\DOBUTAMINE HYDROCHLORIDE
     Indication: LEFT VENTRICULAR DYSFUNCTION
     Dosage: 489.6 MG, UNK
     Dates: start: 20130818, end: 20130821
  22. K-DUR [Concomitant]
     Active Substance: POTASSIUM CHLORIDE
     Indication: HYPOKALAEMIA
     Dosage: 10 MEQ, BID
     Route: 048
     Dates: start: 20130204
  23. MIDODRINE [Concomitant]
     Active Substance: MIDODRINE
     Indication: HYPOTENSION
     Dosage: 2.5 MG, QD
     Route: 048
     Dates: start: 201305
  24. HEPARIN [Concomitant]
     Active Substance: HEPARIN SODIUM
     Indication: THROMBOSIS PROPHYLAXIS
     Dosage: 50 UNITS, QD
     Route: 042
     Dates: start: 20130819, end: 20130819
  25. LOVENOX [Concomitant]
     Active Substance: ENOXAPARIN SODIUM
     Dosage: 30 MG, QD
     Route: 058
     Dates: start: 20130821, end: 20130821
  26. VIAGRA [Concomitant]
     Active Substance: SILDENAFIL CITRATE
     Indication: LEFT VENTRICULAR DYSFUNCTION
     Dosage: 12.5 MG, TID
     Route: 048
     Dates: start: 20130817, end: 20130821
  27. ALBUTEROL SULFATE. [Concomitant]
     Active Substance: ALBUTEROL SULFATE
     Indication: LEFT VENTRICULAR DYSFUNCTION
     Dosage: UNK
     Route: 055
     Dates: start: 20130819, end: 20130819
  28. ADVAIR DISKUS [Concomitant]
     Active Substance: FLUTICASONE PROPIONATE\SALMETEROL XINAFOATE
     Indication: CHRONIC OBSTRUCTIVE PULMONARY DISEASE
     Dosage: UNK UNK, BID
     Route: 055
     Dates: start: 20121126
  29. TYLENOL [Concomitant]
     Active Substance: ACETAMINOPHEN
     Indication: DIABETIC NEPHROPATHY
     Dosage: 325 MG, UNK
     Route: 048
     Dates: start: 201303
  30. TEMAZEPAM. [Concomitant]
     Active Substance: TEMAZEPAM
     Indication: INSOMNIA
     Dosage: 15 MG, UNK
     Route: 048
     Dates: start: 20121012
  31. LOVENOX [Concomitant]
     Active Substance: ENOXAPARIN SODIUM
     Indication: LEFT VENTRICULAR DYSFUNCTION
     Dosage: 30 MG, BID
     Route: 058
     Dates: start: 20130816, end: 20130820

REACTIONS (2)
  - Haemorrhagic stroke [Fatal]
  - Left ventricular dysfunction [Not Recovered/Not Resolved]

NARRATIVE: CASE EVENT DATE: 20130918
